FAERS Safety Report 6226507-2 (Version None)
Quarter: 2009Q2

REPORT INFORMATION
  Report Type: 
  Country: None (occurrence: None)
  Receive Date: 20090612
  Receipt Date: 20090515
  Transmission Date: 20091009
  Serious: No
  Sender: FDA-Public Use
  Company Number: US-ABBOTT-09P-163-0574034-00

PATIENT
  Sex: Female
  Weight: 49.94 kg

DRUGS (8)
  1. HUMIRA [Suspect]
     Indication: CROHN'S DISEASE
     Route: 058
     Dates: start: 20080101
  2. NEXIUM [Concomitant]
     Indication: DRUG USE FOR UNKNOWN INDICATION
  3. HYDROCHLOROTHIAZIDE [Concomitant]
     Indication: DRUG USE FOR UNKNOWN INDICATION
  4. ALCOPINE [Concomitant]
     Indication: DRUG USE FOR UNKNOWN INDICATION
  5. BESYLATE [Concomitant]
     Indication: DRUG USE FOR UNKNOWN INDICATION
  6. VALIUM [Concomitant]
     Indication: DRUG USE FOR UNKNOWN INDICATION
  7. RESTORIL [Concomitant]
     Indication: DRUG USE FOR UNKNOWN INDICATION
  8. PREMPRO [Concomitant]
     Indication: DRUG USE FOR UNKNOWN INDICATION

REACTIONS (1)
  - INCORRECT DOSE ADMINISTERED [None]
